FAERS Safety Report 11729203 (Version 2)
Quarter: 2015Q4

REPORT INFORMATION
  Report Type: Spontaneous
  Country: JP (occurrence: JP)
  Receive Date: 20151112
  Receipt Date: 20151216
  Transmission Date: 20160304
  Serious: Yes (Death)
  Sender: FDA-Public Use
  Company Number: PHJP2015JP019716

PATIENT
  Age: 92 Year
  Sex: Female

DRUGS (1)
  1. EXELON PATCH [Suspect]
     Active Substance: RIVASTIGMINE
     Indication: DEMENTIA ALZHEIMER^S TYPE
     Dosage: 4.6 MG/24H  (PATCH 5 CM2, 9 MG OF RIVASTIGMINE BASE)
     Route: 062
     Dates: start: 20151020

REACTIONS (1)
  - Death [Fatal]

NARRATIVE: CASE EVENT DATE: 20151104
